FAERS Safety Report 17889028 (Version 2)
Quarter: 2020Q2

REPORT INFORMATION
  Report Type: Spontaneous
  Country: US (occurrence: US)
  Receive Date: 20200612
  Receipt Date: 20200616
  Transmission Date: 20200714
  Serious: No
  Sender: FDA-Public Use
  Company Number: US-SA-2020SA150008

PATIENT

DRUGS (1)
  1. ENOXAPARIN SODIUM - WINTHROP [Suspect]
     Active Substance: ENOXAPARIN SODIUM
     Indication: ANTICOAGULANT THERAPY
     Dosage: 0.9 ML, Q12H
     Route: 065
     Dates: start: 20200526

REACTIONS (4)
  - Product packaging issue [Unknown]
  - Administration site pain [Unknown]
  - Syringe issue [Unknown]
  - Device defective [Unknown]
